FAERS Safety Report 9024297 (Version 2)
Quarter: 2013Q1

REPORT INFORMATION
  Report Type: Spontaneous
  Country: JP (occurrence: JP)
  Receive Date: 20130121
  Receipt Date: 20130311
  Transmission Date: 20140127
  Serious: Yes (Hospitalization)
  Sender: FDA-Public Use
  Company Number: PHHY2013JP005145

PATIENT
  Age: 73 Year
  Sex: Male

DRUGS (1)
  1. NEORAL [Suspect]
     Indication: COLLAGEN DISORDER

REACTIONS (2)
  - Cytomegalovirus infection [Recovered/Resolved]
  - Diarrhoea [Recovered/Resolved]
